FAERS Safety Report 14091783 (Version 1)
Quarter: 2017Q4

REPORT INFORMATION
  Report Type: Spontaneous
  Country: US (occurrence: US)
  Receive Date: 20171013
  Receipt Date: 20171013
  Transmission Date: 20180321
  Serious: Yes (Other)
  Sender: FDA-Public Use
  Company Number: None

PATIENT
  Age: 21 Year
  Sex: Male

DRUGS (2)
  1. PREDNISOLONE ACETATE. [Suspect]
     Active Substance: PREDNISOLONE ACETATE
     Indication: TRANSPLANT REJECTION
     Route: 061
     Dates: start: 20160920, end: 20171013
  2. PREDNISOLONE ACETATE. [Suspect]
     Active Substance: PREDNISOLONE ACETATE
     Indication: CORNEAL TRANSPLANT
     Route: 061
     Dates: start: 20160920, end: 20171013

REACTIONS (2)
  - Transplant rejection [None]
  - Drug ineffective [None]

NARRATIVE: CASE EVENT DATE: 20160920
